FAERS Safety Report 15424261 (Version 1)
Quarter: 2018Q3

REPORT INFORMATION
  Report Type: Spontaneous
  Country: US (occurrence: US)
  Receive Date: 20180925
  Receipt Date: 20180925
  Transmission Date: 20181010
  Serious: No
  Sender: FDA-Public Use
  Company Number: US-MYLANLABS-2018M1068272

PATIENT
  Age: 77 Year
  Sex: Female

DRUGS (1)
  1. DYMISTA [Suspect]
     Active Substance: AZELASTINE HYDROCHLORIDE\FLUTICASONE PROPIONATE
     Indication: UPPER-AIRWAY COUGH SYNDROME
     Dosage: UNK, BID (1 SPRAY IN EACH NOSTRIL)
     Route: 045
     Dates: start: 20180911

REACTIONS (6)
  - Condition aggravated [Recovering/Resolving]
  - Sneezing [Recovering/Resolving]
  - Rhinorrhoea [Recovering/Resolving]
  - Nasal congestion [Not Recovered/Not Resolved]
  - Drug ineffective for unapproved indication [Unknown]
  - Upper-airway cough syndrome [Recovering/Resolving]

NARRATIVE: CASE EVENT DATE: 20180911
